FAERS Safety Report 9725855 (Version 1)
Quarter: 2013Q4

REPORT INFORMATION
  Report Type: Spontaneous
  Country: US (occurrence: None)
  Receive Date: 20131127
  Receipt Date: 20131127
  Transmission Date: 20140711
  Serious: Yes (Death)
  Sender: FDA-Public Use
  Company Number: 2013AP008543

PATIENT
  Age: 35 Year
  Sex: Male

DRUGS (5)
  1. METFORMIN HCL TABLETS [Suspect]
     Route: 048
  2. IBUPROFEN [Suspect]
     Route: 048
  3. COCAINE [Suspect]
     Route: 048
  4. ETHANOL [Suspect]
     Route: 048
  5. ALPRAZOLAM [Suspect]
     Route: 048

REACTIONS (1)
  - Completed suicide [None]
